FAERS Safety Report 19178035 (Version 4)
Quarter: 2021Q2

REPORT INFORMATION
  Report Type: Spontaneous
  Country: US (occurrence: US)
  Receive Date: 20210426
  Receipt Date: 20210525
  Transmission Date: 20210717
  Serious: Yes (Hospitalization, Disabling)
  Sender: FDA-Public Use
  Company Number: US-CELLTRION INC.-2020US028611

PATIENT

DRUGS (5)
  1. INFLECTRA [Suspect]
     Active Substance: INFLIXIMAB-DYYB
     Indication: NERVOUS SYSTEM DISORDER
     Dosage: (LAST INFUSION) 5MG/KG BY INFUSION ONCE A MONTH
     Route: 065
     Dates: start: 20210301
  2. INFLECTRA [Suspect]
     Active Substance: INFLIXIMAB-DYYB
     Dosage: UNK
     Route: 065
  3. INFLECTRA [Suspect]
     Active Substance: INFLIXIMAB-DYYB
     Dosage: UNK
     Route: 065
  4. INFLECTRA [Suspect]
     Active Substance: INFLIXIMAB-DYYB
     Indication: MULTIPLE SCLEROSIS
     Dosage: UNK
     Route: 065
     Dates: start: 202101
  5. INFLECTRA [Suspect]
     Active Substance: INFLIXIMAB-DYYB
     Indication: RHEUMATOID ARTHRITIS
     Dosage: 5MG/KG BY INFUSION ONCE A MONTH
     Route: 065
     Dates: start: 20201130

REACTIONS (9)
  - Product availability issue [Unknown]
  - Circumstance or information capable of leading to medication error [Unknown]
  - Hospitalisation [Unknown]
  - Overdose [Unknown]
  - Feeling abnormal [Unknown]
  - Condition aggravated [Unknown]
  - Product dose omission issue [Unknown]
  - Off label use [Unknown]
  - Treatment delayed [Unknown]
